FAERS Safety Report 11195129 (Version 2)
Quarter: 2017Q1

REPORT INFORMATION
  Report Type: Spontaneous
  Country: US (occurrence: US)
  Receive Date: 20150617
  Receipt Date: 20170316
  Transmission Date: 20170428
  Serious: Yes (Other)
  Sender: FDA-Public Use
  Company Number: US-ELI_LILLY_AND_COMPANY-US201506004177

PATIENT
  Sex: Male

DRUGS (5)
  1. CYMBALTA [Suspect]
     Active Substance: DULOXETINE HYDROCHLORIDE
     Dosage: 60 MG, QD
     Route: 048
  2. CYMBALTA [Suspect]
     Active Substance: DULOXETINE HYDROCHLORIDE
     Dosage: 120 MG, UNKNOWN
     Route: 048
  3. ZOLPIDEM TARTRATE. [Concomitant]
     Active Substance: ZOLPIDEM TARTRATE
     Indication: SLEEP DISORDER
     Dosage: 10 MG, PRN
     Route: 048
  4. CYMBALTA [Suspect]
     Active Substance: DULOXETINE HYDROCHLORIDE
     Indication: PRODUCT USED FOR UNKNOWN INDICATION
     Dosage: 30 MG, QD
     Route: 048
  5. VENLAFAXINE HCL [Suspect]
     Active Substance: VENLAFAXINE HYDROCHLORIDE
     Indication: MOOD ALTERED
     Dosage: 150 MG, QD
     Route: 048

REACTIONS (22)
  - Mood swings [Unknown]
  - Memory impairment [Unknown]
  - Anxiety [Unknown]
  - Vomiting [Unknown]
  - Fatigue [Unknown]
  - Insomnia [Unknown]
  - Aggression [Unknown]
  - Drug withdrawal syndrome [Unknown]
  - Paraesthesia [Unknown]
  - Agitation [Unknown]
  - Irritability [Unknown]
  - Headache [Unknown]
  - Nightmare [Unknown]
  - Tremor [Unknown]
  - Anger [Unknown]
  - Dizziness [Unknown]
  - Suicidal ideation [Unknown]
  - Confusional state [Unknown]
  - Diarrhoea [Unknown]
  - Nausea [Unknown]
  - Sleep disorder [Unknown]
  - Hyperhidrosis [Unknown]
